FAERS Safety Report 11201505 (Version 2)
Quarter: 2015Q3

REPORT INFORMATION
  Report Type: Spontaneous
  Country: GR (occurrence: GR)
  Receive Date: 20150619
  Receipt Date: 20150701
  Transmission Date: 20151125
  Serious: Yes (Other)
  Sender: FDA-Public Use
  Company Number: GR-SHIRE-ALL1-2013-04638

PATIENT
  Age: 60 Year
  Sex: Female

DRUGS (2)
  1. MEZAVANT [Suspect]
     Active Substance: MESALAMINE
     Dosage: 2400 MG, 1X/DAY:QD
     Route: 048
     Dates: start: 201305, end: 201306
  2. MEZAVANT [Suspect]
     Active Substance: MESALAMINE
     Indication: COLITIS ULCERATIVE
     Dosage: 1200 MG, 1X/DAY:QD
     Route: 048
     Dates: start: 201306

REACTIONS (1)
  - Sudden hearing loss [Recovered/Resolved]

NARRATIVE: CASE EVENT DATE: 201307
